FAERS Safety Report 8762203 (Version 1)
Quarter: 2012Q4

REPORT INFORMATION
  Report Type: 
  Country: FR (occurrence: FR)
  Receive Date: 20120829
  Receipt Date: 20120829
  Transmission Date: 20130627
  Serious: Yes (Hospitalization, Other)
  Sender: FDA-Public Use
  Company Number: FR-PFIZER INC-2012206860

PATIENT
  Age: 68 Year
  Sex: Female

DRUGS (2)
  1. EFFEXOR LP [Suspect]
     Dosage: 75 mg, 1x/day
     Route: 048
     Dates: end: 20120324
  2. TARCEVA [Suspect]
     Indication: BONE SCAN ABNORMAL
     Dosage: 150 mg, 1x/day
     Route: 048
     Dates: start: 20110916, end: 20120324

REACTIONS (6)
  - Interstitial lung disease [Recovered/Resolved]
  - Acute respiratory failure [Recovered/Resolved]
  - Dyspnoea [Recovered/Resolved]
  - Infectious disease carrier [Recovered/Resolved]
  - Pulmonary embolism [Recovered/Resolved]
  - Cough [Recovered/Resolved]
